FAERS Safety Report 24121985 (Version 2)
Quarter: 2024Q3

REPORT INFORMATION
  Report Type: Spontaneous
  Country: US (occurrence: US)
  Receive Date: 20240722
  Receipt Date: 20240805
  Transmission Date: 20241017
  Serious: No
  Sender: INCYTE
  Company Number: US-INCYTE CORPORATION-2024IN007183

PATIENT

DRUGS (1)
  1. OPZELURA [Suspect]
     Active Substance: RUXOLITINIB PHOSPHATE
     Indication: Dermatitis atopic
     Dosage: UNK
     Route: 061

REACTIONS (5)
  - Body temperature increased [Unknown]
  - Back pain [Unknown]
  - Eye allergy [Unknown]
  - Exposure via eye contact [Unknown]
  - Diarrhoea [Not Recovered/Not Resolved]
